FAERS Safety Report 12228541 (Version 1)
Quarter: 2016Q2

REPORT INFORMATION
  Report Type: Spontaneous
  Country: US (occurrence: US)
  Receive Date: 20160401
  Receipt Date: 20160401
  Transmission Date: 20160815
  Serious: No
  Sender: FDA-Public Use
  Company Number: US-PFIZER INC-2016146453

PATIENT
  Sex: Male

DRUGS (1)
  1. ATORVASTATIN CALCIUM. [Suspect]
     Active Substance: ATORVASTATIN CALCIUM
     Dosage: TAKING ATORVASTATIN CALCIUM TABS BETWEEN 20 MG AND 40 MG

REACTIONS (3)
  - Pain in extremity [Unknown]
  - Radiculopathy [Unknown]
  - Arthralgia [Unknown]
